FAERS Safety Report 7831837-4 (Version None)
Quarter: 2011Q4

REPORT INFORMATION
  Report Type: 
  Country: None (occurrence: None)
  Receive Date: 20111021
  Receipt Date: 20111018
  Transmission Date: 20120403
  Serious: No
  Sender: FDA-Public Use
  Company Number: US-PFIZER INC-2011252344

PATIENT
  Sex: Female

DRUGS (2)
  1. LIPITOR [Suspect]
     Indication: BLOOD CHOLESTEROL INCREASED
     Dosage: 10 MG, 1X/DAY
     Route: 048
  2. LEXAPRO [Suspect]
     Dosage: 10 MG, 1X/DAY
     Route: 048
     Dates: start: 20110901

REACTIONS (1)
  - BLOOD CHOLESTEROL INCREASED [None]
